FAERS Safety Report 10359958 (Version 1)
Quarter: 2014Q3

REPORT INFORMATION
  Report Type: Spontaneous
  Country: IT (occurrence: None)
  Receive Date: 20140730
  Receipt Date: 20140730
  Transmission Date: 20150326
  Serious: No
  Sender: FDA-Public Use
  Company Number: 2449819

PATIENT
  Age: 64 Year
  Sex: Female
  Weight: 61 kg

DRUGS (6)
  1. FLUOROURACIL. [Suspect]
     Active Substance: FLUOROURACIL
     Indication: COLON CANCER
     Dosage: CYCLICAL
     Route: 040
     Dates: start: 20131024, end: 20140110
  2. CARDIOSPIRIN [Concomitant]
  3. LEVOFLOXACIN ACID [Concomitant]
  4. OLPRESS [Concomitant]
     Active Substance: OLMESARTAN MEDOXOMIL
  5. IRINOTECAN HYDROCHLORIDE. [Suspect]
     Active Substance: IRINOTECAN HYDROCHLORIDE
     Indication: COLON CANCER
     Dosage: CYCLICAL
     Route: 042
     Dates: start: 20131024, end: 20140110
  6. ERBITUX [Suspect]
     Active Substance: CETUXIMAB
     Indication: COLON CANCER
     Dosage: CYCLICAL
     Route: 042
     Dates: start: 20131024, end: 20140110

REACTIONS (2)
  - Skin fissures [None]
  - Haemorrhage [None]

NARRATIVE: CASE EVENT DATE: 20131122
